FAERS Safety Report 26055732 (Version 5)
Quarter: 2025Q4

REPORT INFORMATION
  Report Type: Spontaneous
  Country: US (occurrence: CO)
  Receive Date: 20251117
  Receipt Date: 20251219
  Transmission Date: 20260118
  Serious: Yes (Hospitalization, Disabling, Other)
  Sender: VALIDUS
  Company Number: US-VALIDUS PHARMACEUTICALS LLC-VLDS-RB-2025-00294

PATIENT

DRUGS (27)
  1. CARBAMAZEPINE [Suspect]
     Active Substance: CARBAMAZEPINE
     Indication: Product used for unknown indication
     Dosage: 100 MILLIGRAM, QD
     Route: 048
  2. CARBAMAZEPINE [Suspect]
     Active Substance: CARBAMAZEPINE
     Dosage: 50 MILLIGRAM, QD
     Route: 065
  3. CARBAMAZEPINE [Suspect]
     Active Substance: CARBAMAZEPINE
     Dosage: 100 MICROGRAM, QD
     Route: 065
  4. CARBAMAZEPINE [Suspect]
     Active Substance: CARBAMAZEPINE
     Dosage: 7 MILLILITER, BID
     Route: 065
  5. CARBAMAZEPINE [Suspect]
     Active Substance: CARBAMAZEPINE
     Dosage: UNK
     Route: 065
  6. CARBAMAZEPINE [Suspect]
     Active Substance: CARBAMAZEPINE
     Dosage: UNK, BID
     Route: 065
  7. ELAPRASE [Suspect]
     Active Substance: IDURSULFASE
     Indication: Mucopolysaccharidosis II
     Dosage: 23 MILLIGRAM, WEEKLY
     Route: 042
     Dates: start: 20131201
  8. ELAPRASE [Suspect]
     Active Substance: IDURSULFASE
     Dosage: 24 MILLIGRAM, WEEKLY
     Route: 042
     Dates: start: 20131201
  9. ELAPRASE [Suspect]
     Active Substance: IDURSULFASE
     Dosage: 25 MILLIGRAM, WEEKLY
     Route: 042
  10. ELAPRASE [Suspect]
     Active Substance: IDURSULFASE
     Dosage: 24 MILLIGRAM, WEEKLY
     Route: 050
  11. ELAPRASE [Suspect]
     Active Substance: IDURSULFASE
     Dosage: 24 MILLIGRAM, WEEKLY
     Route: 042
  12. LEVOTHYROXINE [Suspect]
     Active Substance: LEVOTHYROXINE
     Indication: Product used for unknown indication
     Dosage: 100 MICROGRAM, QD
     Route: 065
  13. LEVOTHYROXINE [Suspect]
     Active Substance: LEVOTHYROXINE
     Dosage: 100 MICROGRAM, QOD
     Route: 065
  14. LEVOTHYROXINE [Suspect]
     Active Substance: LEVOTHYROXINE
     Dosage: 150 MICROGRAM, QD
     Route: 065
  15. LEVOTHYROXINE [Suspect]
     Active Substance: LEVOTHYROXINE
     Dosage: 100 MICROGRAM, QD
     Route: 065
  16. MELATONIN [Suspect]
     Active Substance: MELATONIN
     Indication: Product used for unknown indication
     Dosage: 6 MILLIGRAM, QD
     Route: 065
  17. HIGH DENSITY POLYETHYLENE [Suspect]
     Active Substance: HIGH DENSITY POLYETHYLENE
     Indication: Product used for unknown indication
     Dosage: 30 MILLIGRAM, QD
     Route: 065
  18. PREDNISOLONE [Suspect]
     Active Substance: PREDNISOLONE
     Indication: Product used for unknown indication
     Dosage: UNK
     Route: 065
  19. ATOMOXETINE [Concomitant]
     Active Substance: ATOMOXETINE
     Indication: Product used for unknown indication
     Dosage: UNK
     Route: 065
  20. CLOBAZAM [Concomitant]
     Active Substance: CLOBAZAM
     Indication: Product used for unknown indication
     Dosage: UNK
     Route: 065
  21. Cholecalciferol + vitamin a [Concomitant]
     Indication: Product used for unknown indication
     Dosage: UNK
     Route: 065
  22. FLUOXETINE [Concomitant]
     Active Substance: FLUOXETINE HYDROCHLORIDE
     Indication: Product used for unknown indication
     Dosage: UNK
     Route: 065
  23. Fexofenadine akrikhin [Concomitant]
     Indication: Product used for unknown indication
     Dosage: UNK
     Route: 065
  24. HYDROCHLOROTHIAZIDE [Concomitant]
     Active Substance: HYDROCHLOROTHIAZIDE
     Indication: Product used for unknown indication
     Dosage: UNK
     Route: 065
  25. MOMETASONE FUROATE [Concomitant]
     Active Substance: MOMETASONE FUROATE
     Indication: Product used for unknown indication
     Dosage: UNK
     Route: 065
  26. METOPROLOL [Concomitant]
     Active Substance: METOPROLOL
     Indication: Product used for unknown indication
     Dosage: UNK
     Route: 065
  27. POLYETHYLENE GLYCOLS [Concomitant]
     Active Substance: POLYETHYLENE GLYCOLS
     Indication: Product used for unknown indication
     Dosage: UNK
     Route: 065

REACTIONS (64)
  - Cyanosis [Unknown]
  - Productive cough [Unknown]
  - General physical health deterioration [Unknown]
  - Walking disability [Unknown]
  - Cough [Unknown]
  - Epilepsy [Unknown]
  - Nervous system disorder [Unknown]
  - Cerebral disorder [Unknown]
  - Pericardial effusion [Unknown]
  - Cardiac valve thickening [Unknown]
  - Urinary retention [Unknown]
  - Urinary incontinence [Unknown]
  - Venous injury [Unknown]
  - Weight increased [Unknown]
  - Anxiety [Unknown]
  - Poor venous access [Unknown]
  - Crying [Unknown]
  - Pain [Unknown]
  - Irritability [Unknown]
  - Anger [Unknown]
  - Ecchymosis [Unknown]
  - Weight decreased [Unknown]
  - Sensitive skin [Unknown]
  - Decreased appetite [Unknown]
  - Screaming [Unknown]
  - Oropharyngeal discomfort [Unknown]
  - Insomnia [Unknown]
  - Puncture site pain [Unknown]
  - Nasal pruritus [Unknown]
  - Ear pruritus [Unknown]
  - Hyperkeratosis [Unknown]
  - Malaise [Unknown]
  - Pain in extremity [Unknown]
  - Seasonal allergy [Unknown]
  - Restlessness [Unknown]
  - Puncture site inflammation [Unknown]
  - Puncture site bruise [Unknown]
  - Hyperhidrosis [Unknown]
  - Contusion [Unknown]
  - Inflammation [Unknown]
  - Face injury [Unknown]
  - Peripheral coldness [Unknown]
  - Hand fracture [Unknown]
  - Agitation [Unknown]
  - Gait disturbance [Unknown]
  - Infusion site irritation [Unknown]
  - Infusion site discomfort [Unknown]
  - Infusion site pain [Unknown]
  - Skin discolouration [Unknown]
  - Influenza [Unknown]
  - Vascular access site extravasation [Unknown]
  - Fall [Unknown]
  - Somnolence [Unknown]
  - Anaphylactic reaction [Unknown]
  - Dyspnoea [Unknown]
  - Fatigue [Unknown]
  - Drug ineffective [Unknown]
  - Wrong technique in product usage process [Unknown]
  - Product preparation issue [Unknown]
  - Incorrect drug administration rate [Unknown]
  - Inappropriate schedule of product administration [Unknown]
  - Incorrect dose administered [Unknown]
  - Product prescribing error [Unknown]
  - Treatment noncompliance [Unknown]

NARRATIVE: CASE EVENT DATE: 20251107
